FAERS Safety Report 17571150 (Version 1)
Quarter: 2020Q1

REPORT INFORMATION
  Report Type: Spontaneous
  Country: DE (occurrence: DE)
  Receive Date: 20200323
  Receipt Date: 20200323
  Transmission Date: 20200409
  Serious: Yes (Other)
  Sender: FDA-Public Use
  Company Number: DE-PFIZER INC-2020116472

PATIENT
  Age: 32 Year
  Sex: Female

DRUGS (1)
  1. CYTOTEC [Suspect]
     Active Substance: MISOPROSTOL
     Indication: LABOUR INDUCTION
     Dosage: 200 UG, UNK (IT IS UNCLEAR WHETHER ANOTHER TABLET WAS TAKEN.)
     Route: 048
     Dates: start: 20080602, end: 20080603

REACTIONS (4)
  - Off label use [Unknown]
  - Arrested labour [Recovered/Resolved]
  - Uterine rupture [Recovered/Resolved]
  - Product use in unapproved indication [Unknown]

NARRATIVE: CASE EVENT DATE: 20080602
